FAERS Safety Report 20344140 (Version 2)
Quarter: 2022Q1

REPORT INFORMATION
  Report Type: Spontaneous
  Country: US (occurrence: US)
  Receive Date: 20220118
  Receipt Date: 20220124
  Transmission Date: 20220423
  Serious: No
  Sender: FDA-Public Use
  Company Number: US-GW PHARMA-202201USGW00142

PATIENT

DRUGS (1)
  1. EPIDIOLEX [Suspect]
     Active Substance: CANNABIDIOL
     Indication: Epilepsy
     Dosage: 260 MILLIGRAM, TITRATING EPIDIOLEX
     Route: 048
     Dates: start: 20211116

REACTIONS (2)
  - Fatigue [Unknown]
  - Decreased appetite [Unknown]
